FAERS Safety Report 24247166 (Version 1)
Quarter: 2024Q3

REPORT INFORMATION
  Report Type: Spontaneous
  Country: US (occurrence: US)
  Receive Date: 20240826
  Receipt Date: 20240826
  Transmission Date: 20241016
  Serious: No
  Sender: ALCON
  Company Number: US-ALCON LABORATORIES-ALC2024US002622

PATIENT
  Age: 63 Year
  Sex: Female

DRUGS (1)
  1. ZADITOR [Suspect]
     Active Substance: KETOTIFEN FUMARATE
     Indication: Eye pruritus
     Dosage: 1 DROP IN BOTH EYES TWICE A DAY
     Route: 047

REACTIONS (2)
  - Eye discharge [Not Recovered/Not Resolved]
  - Drug ineffective [Unknown]
